FAERS Safety Report 4739318-1 (Version None)
Quarter: 2005Q3

REPORT INFORMATION
  Report Type: 
  Country: None (occurrence: None)
  Receive Date: 20050810
  Receipt Date: 20050119
  Transmission Date: 20060218
  Serious: No
  Sender: FDA-Public Use
  Company Number: US-GLAXOSMITHKLINE-A0541299A

PATIENT
  Sex: Female

DRUGS (3)
  1. PAXIL [Suspect]
     Indication: DEPRESSION
     Dosage: 10MCG PER DAY
     Route: 048
     Dates: start: 20040901, end: 20050114
  2. KLONOPIN [Concomitant]
  3. WELLBUTRIN XL [Concomitant]

REACTIONS (3)
  - DIARRHOEA [None]
  - DRUG WITHDRAWAL SYNDROME [None]
  - PARAESTHESIA [None]
